FAERS Safety Report 8834293 (Version 1)
Quarter: 2012Q4

REPORT INFORMATION
  Report Type: 
  Country: AU (occurrence: AU)
  Receive Date: 20121010
  Receipt Date: 20121010
  Transmission Date: 20130627
  Serious: Yes (Other)
  Sender: FDA-Public Use
  Company Number: AU-ARROW-2012-16958

PATIENT
  Age: 45 Year
  Sex: Male

DRUGS (2)
  1. RISPERIDONE (UNKNOWN) [Suspect]
     Indication: SCHIZOPHRENIA
     Dosage: 2 mg, qhs
     Route: 048
  2. PALIPERIDONE [Suspect]
     Indication: SCHIZOPHRENIA
     Dosage: 100 mg, unknown
     Route: 030

REACTIONS (3)
  - Lymphopenia [Recovered/Resolved]
  - Drug interaction [Recovered/Resolved]
  - Neutropenia [Recovered/Resolved]
